FAERS Safety Report 24796360 (Version 1)
Quarter: 2025Q1

REPORT INFORMATION
  Report Type: Report from Study
  Country: US (occurrence: US)
  Receive Date: 20250101
  Receipt Date: 20250101
  Transmission Date: 20250409
  Serious: No
  Sender: ACADIA PHARMACEUTICALS
  Company Number: US-ACADIA PHARMACEUTICALS INC.-ACA-2024-PIM-008932

PATIENT
  Age: 83 Year
  Sex: Female

DRUGS (16)
  1. NUPLAZID [Suspect]
     Active Substance: PIMAVANSERIN TARTRATE
     Indication: Parkinson^s disease
     Dosage: 34 MILLIGRAM, QD
     Route: 048
     Dates: start: 202407
  2. LOSARTAN POTASSIUM [Concomitant]
     Active Substance: LOSARTAN POTASSIUM
  3. ACETAMINOPHEN [Concomitant]
     Active Substance: ACETAMINOPHEN
  4. AMLODIPINE BESYLATE [Concomitant]
     Active Substance: AMLODIPINE BESYLATE
  5. ASPIRIN [Concomitant]
     Active Substance: ASPIRIN
  6. ATENOLOL [Concomitant]
     Active Substance: ATENOLOL
  7. BUSPIRONE [Concomitant]
     Active Substance: BUSPIRONE HYDROCHLORIDE
  8. FLUVASTATIN [Concomitant]
     Active Substance: FLUVASTATIN SODIUM
  9. HYDROXYZINE PAMOATE [Concomitant]
     Active Substance: HYDROXYZINE PAMOATE
  10. METAMUCIL SMOOTH TEXTURE [Concomitant]
  11. OMEPRAZOLE [Concomitant]
     Active Substance: OMEPRAZOLE
  12. SERTRALINE [Concomitant]
     Active Substance: SERTRALINE HYDROCHLORIDE
  13. TIZANIDINE [Concomitant]
     Active Substance: TIZANIDINE
  14. DICLOFENAC SODIUM [Concomitant]
     Active Substance: DICLOFENAC SODIUM
  15. ESTRADIOL [Concomitant]
     Active Substance: ESTRADIOL
  16. GEMTESA [Concomitant]
     Active Substance: VIBEGRON

REACTIONS (1)
  - Product dose omission issue [Recovered/Resolved]

NARRATIVE: CASE EVENT DATE: 20241229
